FAERS Safety Report 17081819 (Version 1)
Quarter: 2019Q4

REPORT INFORMATION
  Report Type: Spontaneous
  Country: US (occurrence: US)
  Receive Date: 20191127
  Receipt Date: 20191127
  Transmission Date: 20200122
  Serious: No
  Sender: FDA-Public Use
  Company Number: US-UCBSA-2018057069

PATIENT
  Age: 47 Year
  Sex: Female

DRUGS (4)
  1. DEXAMETHASONE. [Concomitant]
     Active Substance: DEXAMETHASONE
     Indication: MENINGIOMA BENIGN
  2. VIMPAT [Interacting]
     Active Substance: LACOSAMIDE
     Indication: SEIZURE PROPHYLAXIS
  3. VIMPAT [Interacting]
     Active Substance: LACOSAMIDE
     Indication: MENINGIOMA BENIGN
     Dosage: 150 MG, 2X/DAY (BID)
     Dates: start: 201811
  4. VIMPAT [Suspect]
     Active Substance: LACOSAMIDE
     Indication: POST PROCEDURAL COMPLICATION
     Dosage: 100 MG, 2X/DAY (BID)
     Dates: start: 201811, end: 201811

REACTIONS (9)
  - Intentional product misuse [Unknown]
  - Drug interaction [Not Recovered/Not Resolved]
  - Somnolence [Not Recovered/Not Resolved]
  - Heart rate increased [Not Recovered/Not Resolved]
  - Atrial enlargement [Not Recovered/Not Resolved]
  - Alopecia [Not Recovered/Not Resolved]
  - Fatigue [Not Recovered/Not Resolved]
  - Ataxia [Not Recovered/Not Resolved]
  - Irritability [Not Recovered/Not Resolved]

NARRATIVE: CASE EVENT DATE: 201811
